FAERS Safety Report 22036907 (Version 1)
Quarter: 2023Q1

REPORT INFORMATION
  Report Type: Spontaneous
  Country: IR (occurrence: IR)
  Receive Date: 20230225
  Receipt Date: 20230225
  Transmission Date: 20230418
  Serious: Yes (Hospitalization)
  Sender: FDA-Public Use
  Company Number: IR-STRIDES ARCOLAB LIMITED-2023SP002679

PATIENT
  Age: 59 Year
  Sex: Male

DRUGS (2)
  1. PREDNISOLONE [Suspect]
     Active Substance: PREDNISOLONE
     Indication: Pemphigus
     Dosage: 5 MILLIGRAM
     Route: 065
  2. PREDNISOLONE [Suspect]
     Active Substance: PREDNISOLONE
     Dosage: UNK, DOSE TAPERED
     Route: 065

REACTIONS (4)
  - Spontaneous splenic rupture [Recovered/Resolved]
  - Retroperitoneal haematoma [Recovered/Resolved]
  - Colonic haematoma [Recovered/Resolved]
  - Intra-abdominal haematoma [Recovered/Resolved]
